FAERS Safety Report 18059148 (Version 8)
Quarter: 2020Q4

REPORT INFORMATION
  Report Type: Spontaneous
  Country: CZ (occurrence: CZ)
  Receive Date: 20200723
  Receipt Date: 20201125
  Transmission Date: 20210113
  Serious: Yes (Other)
  Sender: FDA-Public Use
  Company Number: CZ-MYLANLABS-2020M1066042

PATIENT
  Age: 62 Year
  Sex: Male
  Weight: 125 kg

DRUGS (31)
  1. BUPRENORPHINE. [Suspect]
     Active Substance: BUPRENORPHINE
     Indication: PAIN
     Dosage: UNK
     Route: 062
  2. OXYCODONE [Suspect]
     Active Substance: OXYCODONE
     Indication: ANALGESIC THERAPY
  3. TRAMADOL. [Suspect]
     Active Substance: TRAMADOL
     Indication: PAIN
     Dosage: 500 MILLIGRAM, QD
     Route: 065
  4. TAPENTADOL [Suspect]
     Active Substance: TAPENTADOL
     Indication: PAIN
     Dosage: 200 MILLIGRAM, 2/DAY
     Route: 065
  5. DICLOFENAC [Suspect]
     Active Substance: DICLOFENAC
     Indication: PAIN
     Dosage: 100-200 MG/WEEK
     Route: 065
  6. DULOXETINE. [Suspect]
     Active Substance: DULOXETINE
     Indication: ANTIDEPRESSANT THERAPY
     Dosage: UNK
     Route: 065
  7. NALOXONE/OXYCODONE [Suspect]
     Active Substance: NALOXONE HYDROCHLORIDE\OXYCODONE HYDROCHLORIDE
     Indication: PAIN
     Dosage: UNK
  8. LACTULOSE. [Suspect]
     Active Substance: LACTULOSE
     Indication: CONSTIPATION
     Dosage: UP TO 9 SOUP SPOONS DAILY DIVIDED IN 3 DOSES AND ONCE TO TWICE A WEEK
     Route: 065
  9. MACROGOL 4000 [Concomitant]
     Active Substance: POLYETHYLENE GLYCOL 4000
     Indication: CONSTIPATION
     Dosage: ONCE TO TWICE A WEEK
  10. BUPRENORPHINE. [Suspect]
     Active Substance: BUPRENORPHINE
     Indication: ANALGESIC THERAPY
  11. OXYCODONE [Suspect]
     Active Substance: OXYCODONE
     Indication: PAIN
     Dosage: UNK
     Route: 065
  12. TRAMADOL. [Suspect]
     Active Substance: TRAMADOL
     Indication: ANALGESIC THERAPY
  13. NALOXONE                           /00328002/ [Suspect]
     Active Substance: NALOXONE HYDROCHLORIDE
     Indication: ANALGESIC THERAPY
     Dosage: UNK
     Route: 065
  14. GABAPENTIN. [Suspect]
     Active Substance: GABAPENTIN
     Indication: ANALGESIC THERAPY
  15. PARACETAMOL + TRAMADOL [Suspect]
     Active Substance: ACETAMINOPHEN\TRAMADOL
     Indication: PAIN
     Dosage: AT A DOSE OF UP TO 225 MG TRAMADOL (PARACETAMOL DOSE UNKNOWN) PER DAY
     Route: 065
  16. TRAMADOL HYDROCHLORIDE. [Concomitant]
     Active Substance: TRAMADOL HYDROCHLORIDE
     Indication: PAIN
     Dosage: AROUND 500 MG/DAY
  17. BISACODYL. [Concomitant]
     Active Substance: BISACODYL
     Indication: CONSTIPATION
     Dosage: UNK
     Route: 065
  18. FENTANYL                           /00174602/ [Suspect]
     Active Substance: FENTANYL
     Indication: ANALGESIC THERAPY
     Dosage: UNK
     Route: 065
  19. TAPENTADOL [Suspect]
     Active Substance: TAPENTADOL
     Indication: ANALGESIC THERAPY
     Dosage: 400 MILLIGRAM (2 X 200 MG)
     Route: 065
  20. TRAMADOL HYDROCHLORIDE. [Concomitant]
     Active Substance: TRAMADOL HYDROCHLORIDE
     Indication: ANALGESIC THERAPY
  21. BISACODYL. [Concomitant]
     Active Substance: BISACODYL
     Dosage: 10 MILLIGRAM, 1?2 TIMES PER WEEK
     Route: 065
  22. PREGABALIN. [Suspect]
     Active Substance: PREGABALIN
     Indication: PAIN
     Dosage: UNK
     Route: 065
  23. VENLAFAXINE [Suspect]
     Active Substance: VENLAFAXINE HYDROCHLORIDE
     Indication: ANTIDEPRESSANT THERAPY
     Dosage: UNK
     Route: 065
  24. TRAZODONE [Suspect]
     Active Substance: TRAZODONE HYDROCHLORIDE
     Indication: ANTIDEPRESSANT THERAPY
  25. GABAPENTIN. [Suspect]
     Active Substance: GABAPENTIN
     Indication: PAIN
     Dosage: UNK
     Route: 065
  26. CITALOPRAM [Suspect]
     Active Substance: CITALOPRAM HYDROBROMIDE
     Indication: ANTIDEPRESSANT THERAPY
     Dosage: UNK
     Route: 065
  27. PREGABALIN. [Suspect]
     Active Substance: PREGABALIN
     Indication: ANALGESIC THERAPY
  28. TRAZODONE [Suspect]
     Active Substance: TRAZODONE HYDROCHLORIDE
     Indication: DEPRESSION
     Dosage: UNK
     Route: 065
  29. DICLOFENAC [Suspect]
     Active Substance: DICLOFENAC
     Indication: ANALGESIC THERAPY
     Dosage: 100-200 MG/WEEK
     Route: 065
  30. PARACETAMOL + TRAMADOL [Suspect]
     Active Substance: ACETAMINOPHEN\TRAMADOL
     Indication: ANALGESIC THERAPY
     Dosage: UNK
     Route: 065
  31. SODIUM BISULFITE. [Concomitant]
     Active Substance: SODIUM BISULFITE
     Indication: CONSTIPATION
     Dosage: 10 MG OR 20 DROPS IN THE EVENING

REACTIONS (19)
  - Application site reaction [Unknown]
  - Functional gastrointestinal disorder [Recovering/Resolving]
  - Condition aggravated [Unknown]
  - Headache [Unknown]
  - Abdominal pain [Unknown]
  - Drug ineffective [Unknown]
  - Constipation [Recovering/Resolving]
  - Weight increased [Unknown]
  - Vomiting [Unknown]
  - Abdominal distension [Unknown]
  - Mental impairment [Unknown]
  - Flatulence [Unknown]
  - Sedation [Unknown]
  - Dry mouth [Unknown]
  - Nausea [Unknown]
  - Major depression [Unknown]
  - Quality of life decreased [Recovering/Resolving]
  - Hypersensitivity [Unknown]
  - Intentional overdose [Unknown]
